FAERS Safety Report 7556803-8 (Version None)
Quarter: 2011Q2

REPORT INFORMATION
  Report Type: 
  Country: None (occurrence: None)
  Receive Date: 20110620
  Receipt Date: 20110609
  Transmission Date: 20111010
  Serious: Yes (Other)
  Sender: FDA-Public Use
  Company Number: TN-US-EMD SERONO, INC.-7064237

PATIENT
  Age: 51 Year
  Sex: Male

DRUGS (2)
  1. REBIF [Suspect]
     Indication: MULTIPLE SCLEROSIS
     Route: 058
     Dates: start: 20110101, end: 20110608
  2. REBIF [Suspect]
     Route: 058
     Dates: start: 20110608

REACTIONS (2)
  - RESPIRATORY DISTRESS [None]
  - INFLUENZA LIKE ILLNESS [None]
